FAERS Safety Report 7032283-6 (Version None)
Quarter: 2010Q4

REPORT INFORMATION
  Report Type: 
  Country: None (occurrence: None)
  Receive Date: 20101007
  Receipt Date: 20100629
  Transmission Date: 20110411
  Serious: No
  Sender: FDA-Public Use
  Company Number: A0867665A

PATIENT
  Age: 66 Year
  Sex: Female

DRUGS (3)
  1. REQUIP XL [Suspect]
     Indication: PARKINSON'S DISEASE
     Dosage: 2MG AT NIGHT
     Route: 048
     Dates: start: 20100628
  2. AVALIDE [Concomitant]
  3. DOXEPIN HCL [Concomitant]

REACTIONS (3)
  - ASTHENIA [None]
  - FATIGUE [None]
  - HEADACHE [None]
